FAERS Safety Report 10469827 (Version 3)
Quarter: 2015Q3

REPORT INFORMATION
  Report Type: Spontaneous
  Country: US (occurrence: US)
  Receive Date: 20140923
  Receipt Date: 20150715
  Transmission Date: 20151125
  Serious: Yes (Death, Hospitalization, Other)
  Sender: FDA-Public Use
  Company Number: US-MERCK-1409USA010740

PATIENT
  Sex: Male
  Weight: 79.37 kg

DRUGS (1)
  1. JANUVIA [Suspect]
     Active Substance: SITAGLIPTIN PHOSPHATE
     Indication: TYPE 2 DIABETES MELLITUS
     Dosage: 100 MG, QD
     Route: 048
     Dates: start: 200808, end: 201110

REACTIONS (7)
  - Lipogranuloma [Unknown]
  - Pancreaticoduodenectomy [Unknown]
  - Pancreatic carcinoma metastatic [Unknown]
  - Death [Fatal]
  - Cholecystectomy [Unknown]
  - Metastases to bone [Unknown]
  - Lymphoid tissue hyperplasia [Unknown]

NARRATIVE: CASE EVENT DATE: 20090804
